FAERS Safety Report 7398266-1 (Version None)
Quarter: 2011Q2

REPORT INFORMATION
  Report Type: 
  Country: None (occurrence: None)
  Receive Date: 20110406
  Receipt Date: 20110329
  Transmission Date: 20111010
  Serious: Yes (Hospitalization, Other)
  Sender: FDA-Public Use
  Company Number: US-AMGEN-USASP2010010617

PATIENT
  Age: 66 Year
  Sex: Male
  Weight: 78.912 kg

DRUGS (17)
  1. SALSALATE [Concomitant]
     Dosage: 500 MG, TID
  2. ROBITUSSIN                         /00048001/ [Concomitant]
  3. FISH OIL [Concomitant]
  4. ENBREL [Suspect]
     Indication: RHEUMATOID ARTHRITIS
     Dosage: 50 MG, QWK
     Dates: start: 19981106, end: 20101001
  5. TYLENOL (CAPLET) [Concomitant]
     Dosage: UNK UNK, TID
  6. CYCLOSPORINE [Concomitant]
     Dosage: 0.05 %, BID
  7. OMEPRAZOLE [Concomitant]
     Dosage: 20 MG, QD
  8. BENZONATATE [Concomitant]
  9. ACETYLSALICYLIC ACID SRT [Concomitant]
     Dosage: 81 MG, QD
  10. MULTIVITAMIN                       /00097801/ [Concomitant]
     Dosage: UNK
  11. ZOLPIDEM [Concomitant]
     Dosage: 5 MG, PRN
  12. METOPROLOL [Concomitant]
     Dosage: 200 MG, BID
  13. AMLODIPINE [Concomitant]
  14. FLAXSEED OIL [Concomitant]
  15. DUTASTERIDE [Concomitant]
     Dosage: 0.5 MG, QD
  16. HUMIRA [Concomitant]
     Dosage: 40 MG, Q2WK
  17. SPIRIVA [Concomitant]

REACTIONS (24)
  - CONFUSIONAL STATE [None]
  - CHRONIC OBSTRUCTIVE PULMONARY DISEASE [None]
  - GOUT [None]
  - MUSCLE SPASMS [None]
  - FEELING HOT [None]
  - CHILLS [None]
  - PYREXIA [None]
  - RASH PRURITIC [None]
  - OEDEMA PERIPHERAL [None]
  - DYSPNOEA [None]
  - HYPERHIDROSIS [None]
  - SARCOIDOSIS [None]
  - PLEURAL EFFUSION [None]
  - ATRIAL FIBRILLATION [None]
  - EPISTAXIS [None]
  - FEELING ABNORMAL [None]
  - WHEEZING [None]
  - RASH ERYTHEMATOUS [None]
  - INSOMNIA [None]
  - HYPERCALCAEMIA [None]
  - BULLOUS LUNG DISEASE [None]
  - MUSCULOSKELETAL STIFFNESS [None]
  - FATIGUE [None]
  - GASTROOESOPHAGEAL REFLUX DISEASE [None]
